FAERS Safety Report 4421746-5 (Version None)
Quarter: 2004Q3

REPORT INFORMATION
  Report Type: 
  Country: None (occurrence: None)
  Receive Date: 20040806
  Receipt Date: 20040719
  Transmission Date: 20050211
  Serious: Yes (Other)
  Sender: FDA-Public Use
  Company Number: USA040772975

PATIENT
  Sex: Male

DRUGS (2)
  1. HUMULIN N [Suspect]
     Dates: start: 19920101
  2. NOVOLIN R [Concomitant]

REACTIONS (4)
  - BLINDNESS UNILATERAL [None]
  - EYE HAEMORRHAGE [None]
  - HYPERTENSION [None]
  - HYPOACUSIS [None]
